FAERS Safety Report 8232017-3 (Version None)
Quarter: 2012Q1

REPORT INFORMATION
  Report Type: 
  Country: None (occurrence: None)
  Receive Date: 20120323
  Receipt Date: 20120308
  Transmission Date: 20120608
  Serious: No
  Sender: FDA-Public Use
  Company Number: US-ENDO PHARMACEUTICALS INC.-OPER20120330

PATIENT
  Sex: Female
  Weight: 54.48 kg

DRUGS (5)
  1. OPANA [Suspect]
     Indication: BREAKTHROUGH PAIN
     Route: 048
  2. ZANAFLEX [Concomitant]
     Indication: MUSCLE SPASMS
     Dosage: UNKNOWN
     Route: 048
     Dates: start: 20070101
  3. ZONEGRAN [Concomitant]
     Indication: NEUROPATHY PERIPHERAL
     Dosage: UNKNOWN
     Route: 048
     Dates: start: 20120201
  4. OPANA ER [Suspect]
     Indication: PAIN
  5. OPANA ER [Suspect]
     Indication: NEURALGIA
     Route: 048
     Dates: start: 20110301

REACTIONS (5)
  - BREAST MASS [None]
  - NAUSEA [None]
  - DRUG EFFECT DECREASED [None]
  - CONSTIPATION [None]
  - GASTROINTESTINAL HAEMORRHAGE [None]
